FAERS Safety Report 10911593 (Version 1)
Quarter: 2015Q1

REPORT INFORMATION
  Report Type: Spontaneous
  Country: US (occurrence: None)
  Receive Date: 20150309
  Receipt Date: 20150309
  Transmission Date: 20150721
  Serious: No
  Sender: FDA-Public Use
  Company Number: None

PATIENT
  Age: 22 Year
  Sex: Male

DRUGS (1)
  1. TECFIDERA [Suspect]
     Active Substance: DIMETHYL FUMARATE
     Indication: MULTIPLE SCLEROSIS
     Dosage: 1 CAPSULE (240MG), TWICE A DAY, ORALLY
     Route: 048
     Dates: start: 20150202

REACTIONS (2)
  - Confusional state [None]
  - Dizziness [None]

NARRATIVE: CASE EVENT DATE: 20150305
